FAERS Safety Report 6259391-1 (Version None)
Quarter: 2009Q3

REPORT INFORMATION
  Report Type: 
  Country: None (occurrence: None)
  Receive Date: 20090706
  Receipt Date: 20090629
  Transmission Date: 20100115
  Serious: Yes (Death, Hospitalization)
  Sender: FDA-Public Use
  Company Number: 2009EN000199

PATIENT
  Age: 18 Year
  Sex: Female

DRUGS (15)
  1. ABELCET [Suspect]
     Indication: BRONCHOPULMONARY ASPERGILLOSIS
     Dosage: 250 MG
  2. AMPHOTERICIN B [Suspect]
     Indication: BRONCHOPULMONARY ASPERGILLOSIS
     Dosage: 500 MG
  3. POSACONAZOLE [Suspect]
     Indication: BRONCHOPULMONARY ASPERGILLOSIS
     Dosage: 200 MG; Q6H; PO
     Route: 048
  4. VORICONAZOLE [Suspect]
     Indication: BRONCHOPULMONARY ASPERGILLOSIS
  5. MICAFUNGIN [Suspect]
     Indication: BRONCHOPULMONARY ASPERGILLOSIS
     Dosage: 100 MG; QD
  6. HYDROCHLOROTHIAZIDE [Suspect]
     Indication: DIABETES INSIPIDUS
     Dosage: 25 MG; QD; PO
     Route: 048
  7. PYRIMETHAMINE [Concomitant]
  8. SULFADIAZINE [Concomitant]
  9. LEUCOVORIN CALCIUM [Concomitant]
  10. DAPTOMYCIN [Concomitant]
  11. PIPERACILLIN SODIUM W/ [Concomitant]
  12. TAZOBACTAM SODIUM [Concomitant]
  13. PHENYTOIN [Concomitant]
  14. ACYCLOVIR [Concomitant]
  15. FAMOTIDINE [Concomitant]

REACTIONS (12)
  - BLOOD BICARBONATE DECREASED [None]
  - BLOOD PRESSURE INCREASED [None]
  - CARDIO-RESPIRATORY ARREST [None]
  - CONVULSION [None]
  - DRUG LEVEL BELOW THERAPEUTIC [None]
  - GENERAL PHYSICAL HEALTH DETERIORATION [None]
  - HEART RATE DECREASED [None]
  - HYPOKALAEMIA [None]
  - LYMPHADENOPATHY [None]
  - NEPHROGENIC DIABETES INSIPIDUS [None]
  - NEUTROPENIA [None]
  - PLATELET COUNT DECREASED [None]
